FAERS Safety Report 20595301 (Version 1)
Quarter: 2022Q1

REPORT INFORMATION
  Report Type: Spontaneous
  Country: IT (occurrence: IT)
  Receive Date: 20220315
  Receipt Date: 20220315
  Transmission Date: 20220423
  Serious: Yes (Other)
  Sender: FDA-Public Use
  Company Number: None

PATIENT
  Age: 54 Year
  Sex: Male
  Weight: 87 kg

DRUGS (2)
  1. PACLITAXEL [Suspect]
     Active Substance: PACLITAXEL
     Indication: Neoplasm of thymus
     Dosage: UNIT DOSE: 350 MG
     Route: 042
     Dates: start: 20220127, end: 20220217
  2. PACLITAXEL [Suspect]
     Active Substance: PACLITAXEL
     Dosage: UNIT DOSE: 350 MG
     Route: 042
     Dates: start: 20220127, end: 20220217

REACTIONS (3)
  - Hypotension [Recovering/Resolving]
  - Hyperglycaemia [Recovering/Resolving]
  - Loss of consciousness [Recovering/Resolving]

NARRATIVE: CASE EVENT DATE: 20220217
